FAERS Safety Report 8221642-1 (Version None)
Quarter: 2012Q1

REPORT INFORMATION
  Report Type: 
  Country: None (occurrence: None)
  Receive Date: 20120316
  Receipt Date: 20120306
  Transmission Date: 20120608
  Serious: Yes (Hospitalization, Other)
  Sender: FDA-Public Use
  Company Number: 2012P1009072

PATIENT
  Age: 59 Year
  Sex: Female
  Weight: 95.2554 kg

DRUGS (4)
  1. UNSPECIFIED ANTIBIOTIC (NO PREF. NAME) [Suspect]
     Indication: LOCALISED INFECTION
     Dosage: 1 PILL;X1
     Dates: start: 20111201, end: 20111201
  2. HYDROCORTISONE [Suspect]
     Indication: ADDISON'S DISEASE
     Dosage: 10 MG;QAM;PO 5 MG;QPM;PO
     Route: 048
     Dates: start: 20091001
  3. HYDROCORTISONE [Suspect]
     Indication: ADDISON'S DISEASE
     Dosage: 10 MG;QAM;PO 5 MG;QPM;PO
     Route: 048
     Dates: start: 20091001
  4. FLUDOCORTISONE [Concomitant]

REACTIONS (13)
  - LOCALISED INFECTION [None]
  - MALAISE [None]
  - PRODUCT CONTAMINATION [None]
  - LOSS OF CONSCIOUSNESS [None]
  - HEADACHE [None]
  - ANGINA PECTORIS [None]
  - ABDOMINAL PAIN UPPER [None]
  - PANCREATITIS [None]
  - ASTHENIA [None]
  - ADRENOCORTICAL INSUFFICIENCY ACUTE [None]
  - COUGH [None]
  - TINNITUS [None]
  - GASTROINTESTINAL PAIN [None]
